FAERS Safety Report 8381296-0 (Version None)
Quarter: 2012Q2

REPORT INFORMATION
  Report Type: 
  Country: None (occurrence: None)
  Receive Date: 20120523
  Receipt Date: 20120515
  Transmission Date: 20120825
  Serious: Yes (Other)
  Sender: FDA-Public Use
  Company Number: US-ABBOTT-12P-163-0936205-00

PATIENT
  Sex: Female
  Weight: 54.48 kg

DRUGS (3)
  1. HUMIRA [Suspect]
     Dates: start: 20120514
  2. HUMIRA [Suspect]
     Indication: RHEUMATOID ARTHRITIS
     Dates: start: 20080601, end: 20090101
  3. HUMIRA [Suspect]
     Dates: start: 20090101, end: 20110101

REACTIONS (7)
  - AMNIOTIC FLUID VOLUME DECREASED [None]
  - RHEUMATOID ARTHRITIS [None]
  - PAIN [None]
  - PARAESTHESIA [None]
  - MUSCULOSKELETAL STIFFNESS [None]
  - CARPAL TUNNEL SYNDROME [None]
  - LACTATION DISORDER [None]
